FAERS Safety Report 6212721-9 (Version None)
Quarter: 2009Q2

REPORT INFORMATION
  Report Type: 
  Country: None (occurrence: None)
  Receive Date: 20090603
  Receipt Date: 20090527
  Transmission Date: 20091009
  Serious: Yes (Death, Life-Threatening, Hospitalization)
  Sender: FDA-Public Use
  Company Number: CN-BRISTOL-MYERS SQUIBB COMPANY-14597850

PATIENT
  Age: 78 Year
  Sex: Female

DRUGS (9)
  1. APIXABAN [Suspect]
     Indication: THROMBOSIS PROPHYLAXIS
     Dosage: INTERRUPTED 20-APR-2009
     Route: 048
     Dates: start: 20080830
  2. WARFARIN SODIUM [Suspect]
     Indication: THROMBOSIS PROPHYLAXIS
     Dosage: INTERRUPTED ON 20APR09
     Route: 048
     Dates: start: 20080830
  3. PLACEBO [Suspect]
     Indication: THROMBOSIS PROPHYLAXIS
     Dosage: INTERRUPTED ON 20APR09
     Route: 048
     Dates: start: 20080830
  4. MANNITOL [Concomitant]
     Dates: start: 20090420
  5. CITICOLINE [Concomitant]
     Dates: start: 20090420
  6. FRUCTOSE [Concomitant]
     Dates: start: 20090420
  7. GLYCEROL 2.6% [Concomitant]
     Dates: start: 20090420
  8. FUROSEMIDE [Concomitant]
     Dates: start: 20090420
  9. ASPIRIN [Concomitant]
     Dates: start: 20090420, end: 20090426

REACTIONS (1)
  - CEREBRAL INFARCTION [None]
